FAERS Safety Report 6959543-9 (Version None)
Quarter: 2010Q3

REPORT INFORMATION
  Report Type: 
  Country: None (occurrence: None)
  Receive Date: 20100827
  Receipt Date: 20100819
  Transmission Date: 20110219
  Serious: Yes (Other)
  Sender: FDA-Public Use
  Company Number: 017514

PATIENT
  Age: 67 Year
  Sex: Female

DRUGS (1)
  1. KEPPRA [Suspect]
     Dosage: 250 MG BID, 250 MG QD

REACTIONS (4)
  - BREAST CANCER [None]
  - CONVULSION [None]
  - DEPRESSION [None]
  - HEADACHE [None]
